FAERS Safety Report 25528154 (Version 1)
Quarter: 2025Q3

REPORT INFORMATION
  Report Type: Spontaneous
  Country: EU (occurrence: EU)
  Receive Date: 20250708
  Receipt Date: 20250708
  Transmission Date: 20251021
  Serious: Yes (Life-Threatening)
  Sender: RANBAXY
  Company Number: EU-URPL-DML-MLP.4401.1.3355.2021

PATIENT
  Age: 23 Year
  Sex: Female
  Weight: 67 kg

DRUGS (2)
  1. IBUPROFEN [Suspect]
     Active Substance: IBUPROFEN
     Indication: Product used for unknown indication
     Route: 048
     Dates: start: 20210605, end: 20210605
  2. KETOPROFEN [Suspect]
     Active Substance: KETOPROFEN
     Indication: Product used for unknown indication
     Route: 048
     Dates: start: 20210605, end: 20210605

REACTIONS (3)
  - Somnolence [Not Recovered/Not Resolved]
  - Vomiting [Not Recovered/Not Resolved]
  - Toxicity to various agents [Not Recovered/Not Resolved]

NARRATIVE: CASE EVENT DATE: 20210605
